FAERS Safety Report 25886365 (Version 1)
Quarter: 2025Q4

REPORT INFORMATION
  Report Type: Spontaneous
  Country: US (occurrence: US)
  Receive Date: 20251006
  Receipt Date: 20251006
  Transmission Date: 20260118
  Serious: Yes (Other)
  Sender: AIPING PHARMACEUTICAL
  Company Number: US-AIPING-2025AILIT00163

PATIENT
  Age: 19 Year
  Sex: Female

DRUGS (2)
  1. PREDNISONE [Suspect]
     Active Substance: PREDNISONE
     Indication: B-cell type acute leukaemia
     Route: 065
  2. ASPARAGINASE [Suspect]
     Active Substance: ASPARAGINASE
     Indication: B-cell type acute leukaemia
     Route: 065

REACTIONS (1)
  - Steroid diabetes [Unknown]
